FAERS Safety Report 4565915-2 (Version None)
Quarter: 2005Q1

REPORT INFORMATION
  Report Type: 
  Country: None (occurrence: None)
  Receive Date: 20050128
  Receipt Date: 20050112
  Transmission Date: 20050727
  Serious: Yes (Death, Congenital Anomaly)
  Sender: FDA-Public Use
  Company Number: S05-FRA-00273-02

PATIENT
  Age: 0 Day

DRUGS (3)
  1. CITALOPRAM HYDROBROMIDE [Suspect]
     Indication: DEPRESSION
     Dosage: 10 MG QD TRANSPLACENTAL
     Route: 064
  2. CHLORPROMAZINE HCL [Suspect]
     Dosage: 0.25 QD TRANSPLACENTAL
     Route: 064
  3. CLONAZEPAM [Concomitant]

REACTIONS (9)
  - CAMPTODACTYLY CONGENITAL [None]
  - CONGENITAL ANOMALY [None]
  - CONGENITAL HAND MALFORMATION [None]
  - CONGENITAL PULMONARY HYPERTENSION [None]
  - DRUG EXPOSURE DURING PREGNANCY [None]
  - FOETAL MOVEMENTS DECREASED [None]
  - JOINT HYPEREXTENSION [None]
  - POLYHYDRAMNIOS [None]
  - PREMATURE BABY [None]
